FAERS Safety Report 10220198 (Version 1)
Quarter: 2014Q2

REPORT INFORMATION
  Report Type: Spontaneous
  Country: US (occurrence: US)
  Receive Date: 20140605
  Receipt Date: 20140605
  Transmission Date: 20141212
  Serious: Yes (Death)
  Sender: FDA-Public Use
  Company Number: US-ROCHE-1414327

PATIENT
  Age: 78 Year
  Sex: Male

DRUGS (3)
  1. XELODA [Suspect]
     Indication: OESOPHAGEAL CARCINOMA
     Dosage: 2000 MG IN MORNING AND 1500 MG IN EVENING
     Route: 048
     Dates: start: 20140501
  2. XELODA [Suspect]
     Indication: METASTASES TO LIVER
  3. LASIX [Concomitant]

REACTIONS (1)
  - Death [Fatal]
